FAERS Safety Report 8893906 (Version 1)
Quarter: 2012Q4

REPORT INFORMATION
  Report Type: 
  Country: JP (occurrence: JP)
  Receive Date: 20121108
  Receipt Date: 20121108
  Transmission Date: 20130627
  Serious: Yes (Hospitalization, Other)
  Sender: FDA-Public Use
  Company Number: JP-BAYER-201013091BYL

PATIENT
  Age: 62 Year
  Sex: Male
  Weight: 61 kg

DRUGS (13)
  1. NEXAVAR [Suspect]
     Indication: CARCINOMA HEPATOCELLULAR
     Route: 048
     Dates: start: 20100519, end: 20100613
  2. NEXAVAR [Suspect]
     Indication: CARCINOMA HEPATOCELLULAR
     Route: 048
     Dates: start: 20100614, end: 20100619
  3. NEXAVAR [Suspect]
     Indication: CARCINOMA HEPATOCELLULAR
     Route: 048
     Dates: start: 20100619, end: 20100619
  4. NEXAVAR [Suspect]
     Indication: CARCINOMA HEPATOCELLULAR
     Route: 048
     Dates: start: 20100708, end: 20100719
  5. NEXAVAR [Suspect]
     Indication: CARCINOMA HEPATOCELLULAR
     Dosage: daily dose 400mg
     Route: 048
  6. VASOLAN [Concomitant]
     Indication: ATRIAL FIBRILLATION
     Dosage: 80 mg (Daily Dose), , oral
     Route: 048
     Dates: start: 20100311
  7. BAYASPIRIN [Concomitant]
     Indication: CEREBRAL INFARCTION
     Dosage: 100 mg (Daily Dose), , oral
     Route: 048
     Dates: start: 20100311
  8. MUCOSTA [Concomitant]
     Indication: GASTRIC ULCER PROPHYLAXIS
     Dosage: 300 mg (Daily Dose), , oral
     Route: 048
     Dates: start: 20100311
  9. TAKEPRON [Concomitant]
     Indication: GASTRIC ULCER PROPHYLAXIS
     Dosage: 15 mg (Daily Dose), , oral
     Route: 048
     Dates: start: 20100311
  10. VITAMEDIN [Concomitant]
     Indication: PROPHYLAXIS AGAINST VITAMIN DEFICIENCY
     Dosage: 50 mg (Daily Dose), , oral
     Route: 048
     Dates: start: 20100311
  11. OPALMON [Concomitant]
     Indication: PROPHYLAXIS
     Dosage: 15 ?g (Daily Dose), , oral
     Route: 048
     Dates: start: 20100311
  12. WARFARIN [Concomitant]
     Indication: ATRIAL FIBRILLATION
     Dosage: 2 mg (Daily Dose), , oral
     Route: 048
     Dates: start: 20100311
  13. OLMETEC [Concomitant]
     Indication: HYPERTENSION
     Dosage: 10 mg (Daily Dose), , oral
     Route: 048
     Dates: start: 20100311

REACTIONS (9)
  - Aspartate aminotransferase increased [Recovered/Resolved]
  - Alanine aminotransferase increased [Recovered/Resolved]
  - Lower gastrointestinal haemorrhage [Recovered/Resolved]
  - Blood bilirubin increased [Recovered/Resolved]
  - Melaena [None]
  - Haematochezia [Recovered/Resolved]
  - Gastrointestinal ulcer [Recovering/Resolving]
  - Abdominal pain [Recovering/Resolving]
  - Decreased appetite [Recovering/Resolving]
